FAERS Safety Report 9060283 (Version 1)
Quarter: 2013Q1

REPORT INFORMATION
  Report Type: Spontaneous
  Country: US (occurrence: US)
  Receive Date: 20130211
  Receipt Date: 20130211
  Transmission Date: 20140127
  Serious: Yes (Other)
  Sender: FDA-Public Use
  Company Number: US-PFIZER INC-2013053052

PATIENT
  Age: 8 Month
  Sex: Male

DRUGS (2)
  1. ADVIL [Suspect]
     Indication: PYREXIA
     Dosage: UNK
  2. ADVIL [Suspect]
     Indication: PAIN

REACTIONS (2)
  - Diarrhoea haemorrhagic [Unknown]
  - Drug ineffective [Unknown]
